FAERS Safety Report 7961016-1 (Version None)
Quarter: 2011Q4

REPORT INFORMATION
  Report Type: 
  Country: None (occurrence: None)
  Receive Date: 20111207
  Receipt Date: 20111204
  Transmission Date: 20120403
  Serious: No
  Sender: FDA-Public Use
  Company Number: US-PFIZER INC-2011295441

PATIENT
  Sex: Female

DRUGS (2)
  1. XANAX [Suspect]
     Indication: SLEEP DISORDER
     Dosage: UNK, AS NEEDED
  2. PRISTIQ [Suspect]
     Dosage: 50 MG, UNK

REACTIONS (2)
  - DRUG INEFFECTIVE [None]
  - INSOMNIA [None]
